FAERS Safety Report 22055929 (Version 2)
Quarter: 2023Q1

REPORT INFORMATION
  Report Type: Report from Study
  Country: US (occurrence: US)
  Receive Date: 20230302
  Receipt Date: 20230306
  Transmission Date: 20230417
  Serious: Yes (Hospitalization, Other)
  Sender: FDA-Public Use
  Company Number: US-GILEAD-2023-0618554

PATIENT
  Age: 56 Year

DRUGS (5)
  1. AZTREONAM LYSINE [Suspect]
     Active Substance: AZTREONAM LYSINE
     Indication: Cystic fibrosis
     Dosage: 75MG INHAL SOL. INHALE 1ML BY NUBULIZATION EVERY 8 HOURS. ALTERNATING EVERY OTHER MONTH.
     Route: 055
     Dates: start: 20200414
  2. REFRESH PM [PARAFFIN, LIQUID;WHITE SOFT PARAFFIN] [Concomitant]
  3. DOCUSATE SODIUM AND SENNA [Concomitant]
     Active Substance: DOCUSATE SODIUM\SENNOSIDES
  4. POLYETHYLENE GLYCOL ELECTROLYTE POWDER(I) [Concomitant]
  5. MUPIROCIN [Concomitant]
     Active Substance: MUPIROCIN

REACTIONS (2)
  - Pneumonia [Unknown]
  - Amputation [Unknown]
